FAERS Safety Report 8783917 (Version 1)
Quarter: 2012Q4

REPORT INFORMATION
  Report Type: Spontaneous
  Country: US (occurrence: None)
  Receive Date: 20120829
  Receipt Date: 20120829
  Transmission Date: 20130627
  Serious: Yes (Other)
  Sender: FDA-Public Use
  Company Number: FK201202453

PATIENT
  Age: 78 Year
  Sex: Female

DRUGS (1)
  1. CALCIUM GLUCONATE [Suspect]
     Indication: HYPOCALCEMIA
     Dosage: (not otherwise specified)
     Route: 042

REACTIONS (2)
  - Hyperphosphataemia [None]
  - Hypophagia [None]
